FAERS Safety Report 9787228 (Version 1)
Quarter: 2013Q4

REPORT INFORMATION
  Report Type: Spontaneous
  Country: FR (occurrence: FR)
  Receive Date: 20131229
  Receipt Date: 20131229
  Transmission Date: 20140711
  Serious: Yes (Death, Life-Threatening)
  Sender: FDA-Public Use
  Company Number: FR-BRISTOL-MYERS SQUIBB COMPANY-19929512

PATIENT
  Age: 73 Year
  Sex: Male

DRUGS (10)
  1. BYETTA 2MG PEN DISPOSABLE [Suspect]
     Indication: TYPE 2 DIABETES MELLITUS
     Dosage: BYETTA 10 MICROGRAM (EXENATIDE) 5 MCG TWICE A DAY THEN 10 MCG TWICE A DAY SC
     Dates: start: 200904, end: 201112
  2. VICTOZA [Suspect]
     Indication: TYPE 2 DIABETES MELLITUS
     Dosage: 6 MG/ML (LIRAGLUTIDE) 0.6 MG THEN 1.2 MG PER DAY SC
     Route: 058
     Dates: start: 201112
  3. PANTOPRAZOLE [Concomitant]
  4. VITAMIN B12 [Concomitant]
  5. FOLIC ACID [Concomitant]
  6. OXEOL [Concomitant]
  7. ESIDREX [Concomitant]
  8. CANDESARTAN [Concomitant]
  9. SINGULAIR [Concomitant]
  10. SPIRIVA [Concomitant]

REACTIONS (1)
  - Pancreatic carcinoma [Fatal]
